FAERS Safety Report 14859529 (Version 1)
Quarter: 2018Q2

REPORT INFORMATION
  Report Type: Spontaneous
  Country: US (occurrence: US)
  Receive Date: 20180421
  Receipt Date: 20180421
  Transmission Date: 20180711
  Serious: No
  Sender: FDA-Public Use
  Company Number: None

PATIENT
  Age: 12 Year
  Sex: Female

DRUGS (1)
  1. NUTROPIN AQ NUSPIN 20 [Suspect]
     Active Substance: SOMATROPIN
     Indication: HYPOPITUITARISM
     Dosage: ?          OTHER FREQUENCY:6 DAYS PWR WEEK;?
     Route: 058
     Dates: start: 201712

REACTIONS (3)
  - Migraine [None]
  - Back pain [None]
  - Weight increased [None]

NARRATIVE: CASE EVENT DATE: 20180421
